FAERS Safety Report 7629226-0 (Version None)
Quarter: 2011Q3

REPORT INFORMATION
  Report Type: 
  Country: None (occurrence: None)
  Receive Date: 20110715
  Receipt Date: 20110706
  Transmission Date: 20111222
  Serious: Yes (Hospitalization, Other)
  Sender: FDA-Public Use
  Company Number: US-2011-10460

PATIENT
  Age: 15 Month
  Sex: Female
  Weight: 110 kg

DRUGS (6)
  1. LENOGRASTIM (LENOGRASTIM) [Concomitant]
  2. BUSULFAN [Suspect]
     Indication: CORD BLOOD TRANSPLANT THERAPY
     Dosage: 3.5 MG/KG, DAILY DOSE, INTRAVENOUS
     Route: 042
  3. METHYLPREDNISOLONE (METHYLPREDNISOLONE ACETE [Concomitant]
  4. CYCLOPHOSPHAMIDE [Suspect]
     Indication: CORD BLOOD TRANSPLANT THERAPY
     Dosage: 50 MG, DAILY DOSE
  5. ANTI-THYMOCYTE GLOBULIN NOS [Concomitant]
  6. CYCLOSPORINE [Concomitant]

REACTIONS (5)
  - HYPERCALCAEMIA [None]
  - PULMONARY HAEMORRHAGE [None]
  - SEPSIS [None]
  - GRAFT VERSUS HOST DISEASE [None]
  - ESCHERICHIA SEPSIS [None]
